FAERS Safety Report 10225631 (Version 1)
Quarter: 2014Q1

REPORT INFORMATION
  Report Type: Spontaneous
  Country: US (occurrence: None)
  Receive Date: 20140306
  Receipt Date: 20140306
  Transmission Date: 20141002
  Serious: Yes (Hospitalization, Other)
  Sender: FDA-Public Use
  Company Number: 163-21880-13113211

PATIENT
  Age: 76 Year
  Sex: Female
  Weight: 59 kg

DRUGS (9)
  1. REVLIMIDE(LENALIDOMIDE)(10 MILLIGRAM, CAPSULES) [Suspect]
     Indication: MYELOFIBROSIS
     Route: 048
     Dates: start: 20131018, end: 2013
  2. EXJADE(DEFERASIROX)(TABLETS) [Concomitant]
  3. NORCO(VIODIN) [Concomitant]
  4. PREDNISONE(PREDNISONE)(TABLETS) [Concomitant]
  5. XALATAN(LATANOPROST)(DROPS) [Concomitant]
  6. GABAPENTIN(GABAPENTIN)(CAPSULES) [Concomitant]
  7. TIMOLOL MALEATE(TIMOLOL MALEATE)(TABLETS) [Concomitant]
  8. VITAMIN D (ERGOCALCIFEROL) [Concomitant]
  9. ASPIRIN EC(ACETYSALICYLIC ACID)(TABLETS) [Concomitant]

REACTIONS (7)
  - Upper gastrointestinal haemorrhage [None]
  - Asthenia [None]
  - Arthralgia [None]
  - Syncope [None]
  - Haemoglobin decreased [None]
  - White blood cell count decreased [None]
  - Pyrexia [None]
